FAERS Safety Report 14193144 (Version 2)
Quarter: 2023Q4

REPORT INFORMATION
  Report Type: Spontaneous
  Country: GB (occurrence: GB)
  Receive Date: 20171115
  Receipt Date: 20231228
  Transmission Date: 20240109
  Serious: Yes (Death, Hospitalization, Other)
  Sender: FDA-Public Use
  Company Number: GB-PURDUE PHARMA-GBR-2016-0042132

PATIENT
  Sex: Male

DRUGS (8)
  1. TRAMADOL [Suspect]
     Active Substance: TRAMADOL\TRAMADOL HYDROCHLORIDE
     Indication: Product used for unknown indication
     Dosage: UNK
     Route: 065
  2. TRAMADOL [Suspect]
     Active Substance: TRAMADOL\TRAMADOL HYDROCHLORIDE
     Indication: Pain
     Dosage: UNK
     Route: 048
     Dates: start: 2015
  3. PREGABALIN [Suspect]
     Active Substance: PREGABALIN
     Indication: Product used for unknown indication
     Dosage: UNK
     Route: 048
  4. TRAMADOL HYDROCHLORIDE [Suspect]
     Active Substance: TRAMADOL HYDROCHLORIDE
     Indication: Pain
     Dosage: 1500 MG TOTAL (300MG 1/DAY)
     Route: 048
     Dates: start: 2016
  5. LANSOPRAZOLE [Concomitant]
     Active Substance: LANSOPRAZOLE
     Indication: Product used for unknown indication
     Dosage: UNK
     Route: 048
     Dates: end: 2016
  6. MIRTAZAPINE [Concomitant]
     Active Substance: MIRTAZAPINE
     Indication: Depression
     Dosage: 45 MG, DAILY
     Route: 048
     Dates: end: 2016
  7. MIRTAZAPINE [Concomitant]
     Active Substance: MIRTAZAPINE
     Dosage: UNK
     Route: 048
  8. PREGABALIN [Concomitant]
     Active Substance: PREGABALIN
     Indication: Product used for unknown indication
     Dosage: 2100 MG, TOTAL (300MG 2/DAY)
     Route: 048
     Dates: start: 2016, end: 2016

REACTIONS (16)
  - Drug abuse [Fatal]
  - Myocardial infarction [Fatal]
  - Toxicity to various agents [Fatal]
  - Prescription drug used without a prescription [Unknown]
  - Heart rate irregular [Not Recovered/Not Resolved]
  - Slow speech [Unknown]
  - Pallor [Unknown]
  - Intentional overdose [Unknown]
  - Diarrhoea [Unknown]
  - Circulatory collapse [Unknown]
  - Loss of consciousness [Not Recovered/Not Resolved]
  - Fatigue [Unknown]
  - Malaise [Unknown]
  - Nervousness [Unknown]
  - Seizure [Not Recovered/Not Resolved]
  - Somnolence [Unknown]

NARRATIVE: CASE EVENT DATE: 20150101
